FAERS Safety Report 17751974 (Version 1)
Quarter: 2020Q2

REPORT INFORMATION
  Report Type: Spontaneous
  Country: FR (occurrence: FR)
  Receive Date: 20200506
  Receipt Date: 20200506
  Transmission Date: 20200714
  Serious: Yes (Other)
  Sender: FDA-Public Use
  Company Number: NVSC2020FR122028

PATIENT
  Age: 14 Month
  Sex: Male

DRUGS (8)
  1. PREDNISOLONE. [Suspect]
     Active Substance: PREDNISOLONE
     Indication: LANGERHANS^ CELL HISTIOCYTOSIS
     Dosage: RECEIVED THREE CYCLES IN 1 DAY
     Route: 065
  2. VEMURAFENIB. [Suspect]
     Active Substance: VEMURAFENIB
     Indication: LANGERHANS^ CELL HISTIOCYTOSIS
     Dosage: 20 MG/KG DAILY
     Route: 048
  3. MERCAPTOPURINE. [Suspect]
     Active Substance: MERCAPTOPURINE
     Indication: LANGERHANS^ CELL HISTIOCYTOSIS
     Dosage: RECEIVED THREE CYCLES
     Route: 065
  4. MERCAPTOPURINE. [Suspect]
     Active Substance: MERCAPTOPURINE
     Indication: BRAF GENE MUTATION
  5. PREDNISOLONE. [Suspect]
     Active Substance: PREDNISOLONE
     Indication: BRAF GENE MUTATION
  6. VEMURAFENIB. [Suspect]
     Active Substance: VEMURAFENIB
     Indication: BRAF GENE MUTATION
  7. VINBLASTINE [Suspect]
     Active Substance: VINBLASTINE
     Indication: LANGERHANS^ CELL HISTIOCYTOSIS
     Dosage: RECEIVED THREE CYCLES IN WEEK
     Route: 065
  8. VINBLASTINE [Suspect]
     Active Substance: VINBLASTINE
     Indication: BRAF GENE MUTATION

REACTIONS (2)
  - Off label use [Unknown]
  - Treatment failure [Unknown]
